FAERS Safety Report 9301706 (Version 8)
Quarter: 2014Q1

REPORT INFORMATION
  Report Type: Report from Study
  Country: SE (occurrence: SE)
  Receive Date: 20130521
  Receipt Date: 20140311
  Transmission Date: 20141002
  Serious: Yes (Hospitalization)
  Sender: FDA-Public Use
  Company Number: SE-ROCHE-1224621

PATIENT
  Age: 92 Year
  Sex: Female
  Weight: 62.8 kg

DRUGS (4)
  1. VISMODEGIB [Suspect]
     Indication: BASAL CELL CARCINOMA
     Dosage: DATE OF LAST DOSE PRIOR TO SAE: 09/MAY/2013
     Route: 048
     Dates: start: 20120508, end: 20130509
  2. SPARKAL [Concomitant]
     Indication: HYPERTENSION
     Dosage: 5MG/50MG DAILY
     Route: 065
     Dates: start: 20110905
  3. MIRTAZAPIN [Concomitant]
     Indication: DEPRESSION
     Route: 065
     Dates: start: 20121126
  4. ACETYLSALICYLIC ACID [Concomitant]
     Indication: MYOCARDIAL INFARCTION
     Route: 065
     Dates: start: 20130512

REACTIONS (1)
  - Myocardial infarction [Recovered/Resolved with Sequelae]
